FAERS Safety Report 18370358 (Version 5)
Quarter: 2020Q4

REPORT INFORMATION
  Report Type: Report from Study
  Country: US (occurrence: US)
  Receive Date: 20201012
  Receipt Date: 20201105
  Transmission Date: 20210114
  Serious: Yes (Death, Hospitalization, Other)
  Sender: FDA-Public Use
  Company Number: US-ASTELLAS-2020US016387

PATIENT
  Age: 79 Year
  Sex: Male

DRUGS (2)
  1. ENZALUTAMIDE [Suspect]
     Active Substance: ENZALUTAMIDE
     Indication: HORMONE-REFRACTORY PROSTATE CANCER
     Route: 048
  2. ENZALUTAMIDE [Suspect]
     Active Substance: ENZALUTAMIDE
     Indication: BONE CANCER

REACTIONS (8)
  - Death [Fatal]
  - Lethargy [Unknown]
  - Product use complaint [Unknown]
  - Dehydration [Unknown]
  - Sluggishness [Unknown]
  - Urinary tract infection [Unknown]
  - Product size issue [Unknown]
  - Fatigue [Unknown]

NARRATIVE: CASE EVENT DATE: 20200520
